FAERS Safety Report 7739438-3 (Version None)
Quarter: 2011Q3

REPORT INFORMATION
  Report Type: 
  Country: None (occurrence: None)
  Receive Date: 20110909
  Receipt Date: 20110825
  Transmission Date: 20111222
  Serious: Yes (Other)
  Sender: FDA-Public Use
  Company Number: JP-ELI_LILLY_AND_COMPANY-JP201107005504

PATIENT
  Sex: Female

DRUGS (7)
  1. MEDROL [Concomitant]
  2. TRACLEER [Concomitant]
     Dosage: 3 DF, QD
     Route: 048
     Dates: start: 20100616
  3. ALENDRONATE SODIUM [Concomitant]
     Route: 048
  4. TADALAFIL [Suspect]
     Dosage: 20 MG, QD
     Route: 048
     Dates: start: 20110817
  5. CRESTOR [Concomitant]
     Route: 048
  6. TADALAFIL [Suspect]
     Dosage: 40 MG/KG, QD
     Route: 048
     Dates: start: 20110501, end: 20110701
  7. WARFARIN SODIUM [Concomitant]
     Route: 048

REACTIONS (1)
  - HEPATIC FUNCTION ABNORMAL [None]
